FAERS Safety Report 18495071 (Version 3)
Quarter: 2022Q3

REPORT INFORMATION
  Report Type: Spontaneous
  Country: JP (occurrence: JP)
  Receive Date: 20201112
  Receipt Date: 20220713
  Transmission Date: 20221026
  Serious: Yes (Other)
  Sender: FDA-Public Use
  Company Number: JP-GSKNCCC-CASE-01075590_AE-36345

PATIENT

DRUGS (5)
  1. LAMICTAL [Suspect]
     Active Substance: LAMOTRIGINE
     Indication: Schizophrenia
     Dosage: 400 MG, 1D
     Route: 048
  2. LAMICTAL [Suspect]
     Active Substance: LAMOTRIGINE
     Dosage: 11200 MG, SINGLE
     Route: 048
     Dates: start: 20201104, end: 20201104
  3. REXULTI [Concomitant]
     Active Substance: BREXPIPRAZOLE
     Dosage: UNK
  4. OLANZAPINE [Concomitant]
     Active Substance: OLANZAPINE
     Dosage: UNK
  5. RIVOTRIL [Concomitant]
     Active Substance: CLONAZEPAM
     Dosage: UNK

REACTIONS (10)
  - Suicide attempt [Unknown]
  - Delirium [Recovering/Resolving]
  - Hallucination [Unknown]
  - Hallucination, auditory [Unknown]
  - Communication disorder [Recovering/Resolving]
  - Delusion [Unknown]
  - Confusional state [Unknown]
  - Tachycardia [Recovering/Resolving]
  - Intentional overdose [Unknown]
  - Product use in unapproved indication [Unknown]
